FAERS Safety Report 4426384-6 (Version None)
Quarter: 2004Q3

REPORT INFORMATION
  Report Type: 
  Country: None (occurrence: None)
  Receive Date: 20040811
  Receipt Date: 20040723
  Transmission Date: 20050211
  Serious: Yes (Death, Hospitalization)
  Sender: FDA-Public Use
  Company Number: FR_040704506

PATIENT
  Age: 36 Week
  Sex: Female
  Weight: 63 kg

DRUGS (3)
  1. GEMZAR [Suspect]
     Indication: BREAST CANCER
     Dosage: 1800 MG OTHER
     Route: 050
     Dates: start: 20040405
  2. DOCETAXEL [Concomitant]
  3. CAPECITABINE [Concomitant]

REACTIONS (9)
  - ANOREXIA [None]
  - DEHYDRATION [None]
  - DYSPHAGIA [None]
  - MALIGNANT NEOPLASM PROGRESSION [None]
  - MOOD ALTERED [None]
  - MUCOSAL INFLAMMATION [None]
  - OROPHARYNGITIS FUNGAL [None]
  - RESPIRATORY FAILURE [None]
  - WEIGHT DECREASED [None]
